FAERS Safety Report 5008552-8 (Version None)
Quarter: 2006Q2

REPORT INFORMATION
  Report Type: 
  Country: None (occurrence: None)
  Receive Date: 20060518
  Receipt Date: 20060508
  Transmission Date: 20061013
  Serious: Yes (Disabling)
  Sender: FDA-Public Use
  Company Number: 29096

PATIENT
  Age: 61 Year
  Sex: Female

DRUGS (2)
  1. ALDARA [Suspect]
     Indication: BASAL CELL CARCINOMA
     Dosage: 2 IN 1 DAY (S)) TOPICAL
     Route: 061
     Dates: start: 20051101, end: 20060106
  2. ALDARA [Suspect]
     Indication: BASAL CELL CARCINOMA
     Dosage: 2 IN 1 DAY (S)) TOPICAL
     Route: 061
     Dates: start: 20060106, end: 20060401

REACTIONS (2)
  - CONDITION AGGRAVATED [None]
  - EXOPHTHALMOS [None]
